FAERS Safety Report 11304259 (Version 1)
Quarter: 2015Q3

REPORT INFORMATION
  Report Type: Spontaneous
  Country: US (occurrence: US)
  Receive Date: 20150723
  Receipt Date: 20150723
  Transmission Date: 20151125
  Serious: No
  Sender: FDA-Public Use
  Company Number: US-JNJFOC-20150103897

PATIENT
  Age: 71 Year
  Sex: Female
  Weight: 81.65 kg

DRUGS (3)
  1. PROPRANOLOL [Concomitant]
     Active Substance: PROPRANOLOL\PROPRANOLOL HYDROCHLORIDE
     Indication: HEART RATE IRREGULAR
     Dosage: YEARS
     Route: 065
  2. PEPCID AC MAXIMUM STRENGTH [Suspect]
     Active Substance: FAMOTIDINE
     Route: 048
  3. PEPCID AC MAXIMUM STRENGTH [Suspect]
     Active Substance: FAMOTIDINE
     Indication: HYPERCHLORHYDRIA
     Route: 048

REACTIONS (8)
  - Dysphagia [Unknown]
  - Product quality issue [Unknown]
  - Abdominal pain upper [Recovering/Resolving]
  - Oral discomfort [Unknown]
  - Rash macular [Unknown]
  - Product packaging issue [Unknown]
  - Glossitis [Unknown]
  - Product contamination [Unknown]

NARRATIVE: CASE EVENT DATE: 20150105
